FAERS Safety Report 25661521 (Version 1)
Quarter: 2025Q3

REPORT INFORMATION
  Report Type: Spontaneous
  Country: US (occurrence: US)
  Receive Date: 20250808
  Receipt Date: 20250808
  Transmission Date: 20251021
  Serious: Yes (Hospitalization, Other)
  Sender: VKT PHARMA PRIVATE LIMITED
  Company Number: US-VKT-000690

PATIENT
  Age: 27 Year
  Sex: Male

DRUGS (1)
  1. LEVETIRACETAM [Suspect]
     Active Substance: LEVETIRACETAM
     Indication: Epilepsy
     Route: 065

REACTIONS (6)
  - Seizure [Unknown]
  - Periprosthetic fracture [Recovered/Resolved]
  - Femoral neck fracture [Recovered/Resolved]
  - Generalised tonic-clonic seizure [Unknown]
  - Acetabulum fracture [Recovered/Resolved]
  - Treatment noncompliance [Unknown]
